FAERS Safety Report 8582413-X (Version None)
Quarter: 2012Q3

REPORT INFORMATION
  Report Type: 
  Country: None (occurrence: None)
  Receive Date: 20120809
  Receipt Date: 20120622
  Transmission Date: 20120928
  Serious: Yes (Hospitalization)
  Sender: FDA-Public Use
  Company Number: JP-GLAXOSMITHKLINE-B0810484A

PATIENT
  Sex: Female

DRUGS (20)
  1. REFLEX (JAPAN) [Concomitant]
     Indication: ANXIETY
     Dosage: 60MG PER DAY
     Route: 048
     Dates: end: 20120506
  2. REFLEX (JAPAN) [Concomitant]
     Dosage: 30MG PER DAY
     Route: 048
     Dates: start: 20120507, end: 20120514
  3. ROHYPNOL [Concomitant]
     Route: 065
  4. LUDIOMIL [Concomitant]
     Route: 048
  5. ALPRAZOLAM [Concomitant]
     Route: 048
  6. LEXOTAN [Concomitant]
     Route: 048
  7. LEVOTHYROXINE SODIUM [Concomitant]
     Indication: HYPOTHYROIDISM
     Dosage: 75MCG PER DAY
     Route: 048
  8. VITAMEDIN [Concomitant]
     Route: 065
  9. MARZULENE [Concomitant]
     Route: 048
  10. PAXIL [Suspect]
     Indication: GENERALISED ANXIETY DISORDER
     Dosage: 10MG PER DAY
     Route: 048
     Dates: start: 20120507, end: 20120513
  11. JUVELA N [Concomitant]
     Route: 048
  12. PAXIL [Suspect]
     Dosage: 20MG PER DAY
     Route: 048
     Dates: start: 20120514, end: 20120516
  13. TOYOFAROL [Concomitant]
     Route: 048
  14. CALCIUM L-ASPARTATE [Concomitant]
     Route: 048
  15. NORVASC [Concomitant]
     Route: 048
  16. MAGNESIUM OXIDE [Concomitant]
     Route: 048
  17. SEDIEL [Concomitant]
     Route: 048
  18. HALCION [Concomitant]
     Route: 048
  19. OMEPRAZOLE [Concomitant]
     Route: 065
  20. VESICARE [Concomitant]
     Route: 048

REACTIONS (8)
  - DEHYDRATION [None]
  - DELUSION [None]
  - SWEAT GLAND DISORDER [None]
  - THINKING ABNORMAL [None]
  - EATING DISORDER [None]
  - CONFUSIONAL STATE [None]
  - AGITATION [None]
  - PYREXIA [None]
